FAERS Safety Report 5141498-3 (Version None)
Quarter: 2006Q4

REPORT INFORMATION
  Report Type: 
  Country: None (occurrence: None)
  Receive Date: 20061101
  Receipt Date: 20061025
  Transmission Date: 20070319
  Serious: Yes (Hospitalization)
  Sender: FDA-Public Use
  Company Number: US-AVENTIS-200621108GDDC

PATIENT
  Age: 74 Year
  Sex: Male
  Weight: 86 kg

DRUGS (18)
  1. TAXOTERE [Suspect]
     Indication: OESOPHAGEAL CARCINOMA
     Route: 042
     Dates: start: 20061019, end: 20061019
  2. CARBOPLATIN [Suspect]
     Indication: OESOPHAGEAL CARCINOMA
     Route: 042
     Dates: start: 20061019, end: 20061019
  3. CAPECITABINE [Suspect]
     Indication: OESOPHAGEAL CARCINOMA
     Route: 048
     Dates: start: 20060907
  4. CAPECITABINE [Suspect]
  5. ASPIRIN [Concomitant]
     Dosage: DOSE: UNK
  6. WELCHOL [Concomitant]
     Dosage: DOSE: UNK
  7. DOXAZOCIN [Concomitant]
     Dosage: DOSE: UNK
  8. DUTASTERIDE [Concomitant]
     Dosage: DOSE: UNK
  9. FENTANYL TRANSDERMAL SYSTEM [Concomitant]
     Dosage: DOSE: UNK
     Dates: start: 20060801
  10. HYDROCHLOROTHIAZIDE [Concomitant]
     Dosage: DOSE: UNK
  11. LASIX [Concomitant]
     Dosage: DOSE: UNK
     Dates: start: 20061012
  12. METFORMIN HCL [Concomitant]
     Dosage: DOSE: UNK
  13. LANTUS [Concomitant]
     Dosage: DOSE: UNK
  14. BENICAR [Concomitant]
     Dosage: DOSE: UNK
  15. METOPROLOL TARTRATE [Concomitant]
     Dosage: DOSE: UNK
  16. ONDANSETRON [Concomitant]
     Dosage: DOSE: UNK
     Dates: start: 20060907
  17. COMPAZINE [Concomitant]
     Dosage: DOSE: UNK
     Dates: start: 20060907
  18. PYRIDOXINE HCL [Concomitant]
     Dosage: DOSE: UNK
     Dates: start: 20060907

REACTIONS (7)
  - ANAEMIA [None]
  - DEHYDRATION [None]
  - DIARRHOEA [None]
  - FEBRILE NEUTROPENIA [None]
  - HYPOGLYCAEMIA [None]
  - PNEUMONIA [None]
  - VOMITING [None]
